FAERS Safety Report 9522645 (Version 1)
Quarter: 2013Q1

REPORT INFORMATION
  Report Type: Spontaneous
  Country: US (occurrence: None)
  Receive Date: 20130305
  Receipt Date: 20130305
  Transmission Date: 20140127
  Serious: Yes (Other)
  Sender: FDA-Public Use
  Company Number: 163-21880-12072797

PATIENT
  Age: 57 Year
  Sex: Female

DRUGS (4)
  1. REVLIMID (LENALIDOMIDE) (CAPSULES) [Suspect]
     Indication: PLASMA CELL MYELOMA
     Dosage: 15 MG,  21 IN 21 D,  PO
     Route: 048
     Dates: start: 20120713
  2. KLOR-CON M10 (POTASSIUM CHLORIDE) (UNKNOWN) [Concomitant]
  3. PROMETHAZINE HCL (PROMETHAZINE HYDROCHLORIDE) (UNKNOWN) [Concomitant]
  4. DEXAMETHASONE (DEXAMETHASONE) (UNKNOWN) [Concomitant]

REACTIONS (1)
  - Blood pressure increased [None]
